FAERS Safety Report 4519621-0 (Version None)
Quarter: 2004Q4

REPORT INFORMATION
  Report Type: 
  Country: None (occurrence: None)
  Receive Date: 20041123
  Receipt Date: 20041104
  Transmission Date: 20050328
  Serious: Yes (Other)
  Sender: FDA-Public Use
  Company Number: 601623

PATIENT
  Age: 65 Year
  Sex: Female
  Weight: 129.2752 kg

DRUGS (9)
  1. TISSEEL VH KIT [Suspect]
     Indication: KNEE ARTHROPLASTY
     Dosage: 5 ML; ONCE; TOPICAL
     Route: 061
     Dates: start: 20040225, end: 20040225
  2. COMBIVENT [Concomitant]
  3. SINGULAIR [Concomitant]
  4. ZOLOFT [Concomitant]
  5. ACCUPRIL [Concomitant]
  6. NIFEDIPINE [Concomitant]
  7. PEPCID [Concomitant]
  8. ADVAIR DISKUS 100/50 [Concomitant]
  9. ZOCOR [Concomitant]

REACTIONS (2)
  - ARTHROFIBROSIS [None]
  - JOINT RANGE OF MOTION DECREASED [None]
